FAERS Safety Report 4680098-6 (Version None)
Quarter: 2005Q2

REPORT INFORMATION
  Report Type: 
  Country: None (occurrence: None)
  Receive Date: 20050531
  Receipt Date: 20050518
  Transmission Date: 20051028
  Serious: Yes (Other)
  Sender: FDA-Public Use
  Company Number: 2005074736

PATIENT
  Age: 48 Year
  Sex: Male

DRUGS (5)
  1. VIAGRA [Suspect]
     Indication: ERECTILE DYSFUNCTION
     Dosage: 50 MG, ORAL
     Route: 048
     Dates: start: 20040501
  2. CARDILOL (CARVEDILOL) [Concomitant]
  3. ASPIRIN [Concomitant]
  4. ISOSORBIDE (ISOSORBIDE) [Concomitant]
  5. ASPIRIN [Concomitant]

REACTIONS (1)
  - CORONARY ARTERY SURGERY [None]
